FAERS Safety Report 18780118 (Version 1)
Quarter: 2021Q1

REPORT INFORMATION
  Report Type: Spontaneous
  Country: FR (occurrence: FR)
  Receive Date: 20210125
  Receipt Date: 20210125
  Transmission Date: 20210419
  Serious: Yes (Hospitalization)
  Sender: FDA-Public Use
  Company Number: FR-SUN PHARMACEUTICAL INDUSTRIES LTD-2021RR-277339

PATIENT
  Age: 60 Year
  Sex: Male
  Weight: 68 kg

DRUGS (10)
  1. DIFFU K, GELULE [Suspect]
     Active Substance: POTASSIUM CHLORIDE
     Indication: HYPOKALAEMIA
     Dosage: 600 MG/J1 J2 J4 J5 J8 J9 J11 J12 ()
     Route: 048
     Dates: start: 20201208, end: 20201211
  2. VELCADE [Suspect]
     Active Substance: BORTEZOMIB
     Indication: PLASMA CELL MYELOMA
     Dosage: 1.4 MG/M2 SOIT 2.2 MG DOSE TOTALE A J1, J4, J8 ET J11
     Route: 058
     Dates: start: 20201208, end: 20201211
  3. AERIUS (DESLORATADINE) [Concomitant]
     Active Substance: DESLORATADINE
     Indication: HYPERSENSITIVITY
     Dosage: 5 MILLIGRAM, DAILY
     Route: 048
  4. SINGULAIR [Concomitant]
     Active Substance: MONTELUKAST SODIUM
     Indication: ASTHMA
     Dosage: 10 MILLIGRAM, DAILY
     Route: 048
  5. VALACICLOVIR [Suspect]
     Active Substance: VALACYCLOVIR HYDROCHLORIDE
     Indication: OPPORTUNISTIC INFECTION PROPHYLAXIS
     Dosage: 1000 MILLIGRAM, DAILY
     Route: 048
     Dates: start: 20201208, end: 20201211
  6. REVLIMID [Suspect]
     Active Substance: LENALIDOMIDE
     Indication: PLASMA CELL MYELOMA
     Dosage: 25 MILLIGRAM, DAILY
     Route: 048
     Dates: start: 20201208, end: 20201211
  7. SALBUTAMOL [Concomitant]
     Active Substance: ALBUTEROL
     Indication: ASTHMA
     Dosage: 100 MICROGRAM, UNK
     Route: 055
  8. ELIQUIS [Suspect]
     Active Substance: APIXABAN
     Indication: THROMBOSIS PROPHYLAXIS
     Dosage: 5 MILLIGRAM, DAILY
     Route: 048
     Dates: start: 20201208, end: 20201211
  9. NEOFORDEX 40 MG, COMPRIME [Suspect]
     Active Substance: DEXAMETHASONE ACETATE
     Indication: PLASMA CELL MYELOMA
     Dosage: 20 MG PAR JOUR LE JOUR ET LE LENDEMAIN DE CHAQUE INJECTION DE VELCADE (BORTEZOMIB) (1)
     Route: 048
     Dates: start: 20201208, end: 20201211
  10. BACTRIM [Suspect]
     Active Substance: SULFAMETHOXAZOLE\TRIMETHOPRIM
     Indication: OPPORTUNISTIC INFECTION PROPHYLAXIS
     Dosage: 800/160 MG 3 TIMES A WEEK
     Route: 048
     Dates: start: 20201208, end: 20201211

REACTIONS (2)
  - Rash erythematous [Recovering/Resolving]
  - Pyrexia [Recovered/Resolved]

NARRATIVE: CASE EVENT DATE: 20201208
